FAERS Safety Report 7712907-8 (Version None)
Quarter: 2011Q3

REPORT INFORMATION
  Report Type: 
  Country: None (occurrence: None)
  Receive Date: 20110826
  Receipt Date: 20110818
  Transmission Date: 20111222
  Serious: Yes (Other)
  Sender: FDA-Public Use
  Company Number: PHEH2011US01885

PATIENT
  Sex: Female

DRUGS (5)
  1. SANDIMMUNE [Suspect]
     Indication: LIVER TRANSPLANT
     Dosage: UNK UKN, UNK
  2. LAMICTAL [Suspect]
     Dosage: UNK UKN, UNK
  3. TRANDATE [Suspect]
     Dosage: UNK UKN, UNK
  4. RAPAMUNE [Suspect]
     Dosage: UNK UKN, UNK
  5. KLONOPIN [Suspect]
     Dosage: UNK UKN, UNK

REACTIONS (1)
  - RENAL FAILURE [None]
